FAERS Safety Report 4412805-1 (Version None)
Quarter: 2004Q3

REPORT INFORMATION
  Report Type: 
  Country: None (occurrence: None)
  Receive Date: 20040727
  Receipt Date: 20040714
  Transmission Date: 20050211
  Serious: Yes (Death)
  Sender: FDA-Public Use
  Company Number: K200400695

PATIENT
  Age: 16 Year
  Sex: Female
  Weight: 70 kg

DRUGS (1)
  1. NORDETTE-21 [Suspect]
     Indication: ORAL CONTRACEPTION
     Dosage: 1 TABLET, QD, ORAL
     Route: 048
     Dates: start: 20040113, end: 20040331

REACTIONS (13)
  - APNOEA [None]
  - FEELING ABNORMAL [None]
  - PAIN [None]
  - PALLOR [None]
  - PERICARDIAL EFFUSION [None]
  - PLEURAL HAEMORRHAGE [None]
  - PULMONARY EMBOLISM [None]
  - PULMONARY INFARCTION [None]
  - PULMONARY OEDEMA [None]
  - SKELETAL INJURY [None]
  - SOFT TISSUE INJURY [None]
  - TONSILLITIS [None]
  - VOMITING [None]
